FAERS Safety Report 6704817-X (Version None)
Quarter: 2010Q2

REPORT INFORMATION
  Report Type: 
  Country: None (occurrence: None)
  Receive Date: 20100430
  Receipt Date: 20100222
  Transmission Date: 20101027
  Serious: No
  Sender: FDA-Public Use
  Company Number: US-ASTRAZENECA-2010SE07585

PATIENT
  Sex: Female
  Weight: 54.4 kg

DRUGS (3)
  1. NEXIUM [Suspect]
     Route: 048
  2. NEXIUM [Suspect]
     Route: 048
     Dates: start: 20090101, end: 20100101
  3. HEALTH FOOD/NATURAL FORMULA FOR STOMACH [Concomitant]

REACTIONS (2)
  - ABDOMINAL DISCOMFORT [None]
  - BREATH ODOUR [None]
